FAERS Safety Report 15144103 (Version 1)
Quarter: 2018Q3

REPORT INFORMATION
  Report Type: Spontaneous
  Country: US (occurrence: US)
  Receive Date: 20180713
  Receipt Date: 20180713
  Transmission Date: 20181010
  Serious: Yes (Hospitalization, Other)
  Sender: FDA-Public Use
  Company Number: US-MALLINCKRODT-T201802885

PATIENT
  Age: 4 Year
  Sex: Male
  Weight: 18 kg

DRUGS (10)
  1. UVADEX [Suspect]
     Active Substance: METHOXSALEN
     Indication: GRAFT VERSUS HOST DISEASE IN GASTROINTESTINAL TRACT
     Dosage: 1ST ECP
     Route: 057
  2. LASIX [Concomitant]
     Active Substance: FUROSEMIDE
     Indication: HYPERTENSION
     Dosage: UNK
     Route: 065
  3. UVADEX [Suspect]
     Active Substance: METHOXSALEN
     Indication: GRAFT VERSUS HOST DISEASE IN LIVER
     Dosage: 2ND ECP
     Route: 057
  4. UVADEX [Suspect]
     Active Substance: METHOXSALEN
     Dosage: 8TH ECP
     Route: 057
     Dates: start: 201807, end: 201807
  5. CLONIDINE. [Concomitant]
     Active Substance: CLONIDINE
     Indication: PRODUCT USED FOR UNKNOWN INDICATION
     Dosage: UNK
     Route: 065
  6. UVADEX [Suspect]
     Active Substance: METHOXSALEN
     Dosage: 3RD ECP
     Route: 057
  7. UVADEX [Suspect]
     Active Substance: METHOXSALEN
     Dosage: 4TH ECP
     Route: 057
  8. UVADEX [Suspect]
     Active Substance: METHOXSALEN
     Dosage: 5TH ECP
     Route: 057
     Dates: start: 20180626, end: 20180626
  9. UVADEX [Suspect]
     Active Substance: METHOXSALEN
     Dosage: 6TH ECP
     Route: 057
     Dates: start: 20180628, end: 20180628
  10. UVADEX [Suspect]
     Active Substance: METHOXSALEN
     Dosage: 7TH ECP
     Route: 057
     Dates: start: 20180702, end: 20180702

REACTIONS (5)
  - Product use in unapproved indication [Unknown]
  - Hypertension [Unknown]
  - Fluid overload [Unknown]
  - Gastrointestinal haemorrhage [Unknown]
  - Respiratory distress [Unknown]

NARRATIVE: CASE EVENT DATE: 20180625
